FAERS Safety Report 19069348 (Version 1)
Quarter: 2021Q1

REPORT INFORMATION
  Report Type: Spontaneous
  Country: KR (occurrence: KR)
  Receive Date: 20210329
  Receipt Date: 20210329
  Transmission Date: 20210420
  Serious: Yes (Hospitalization)
  Sender: FDA-Public Use
  Company Number: KR-SAMSUNG BIOEPIS-SB-2021-07920

PATIENT
  Age: 49 Year
  Sex: Female
  Weight: 71.3 kg

DRUGS (2)
  1. SAMFENET [Suspect]
     Active Substance: TRASTUZUMAB
     Indication: BREAST CANCER
     Dosage: FREQUENCY: 1
     Route: 042
     Dates: start: 20201125
  2. ERIBULIN [Suspect]
     Active Substance: ERIBULIN
     Indication: BREAST CANCER
     Dosage: FREQUENCY: 1, 8
     Route: 042
     Dates: start: 20201125

REACTIONS (1)
  - Postoperative wound infection [Recovered/Resolved]

NARRATIVE: CASE EVENT DATE: 20210315
